FAERS Safety Report 9516309 (Version 1)
Quarter: 2013Q1

REPORT INFORMATION
  Report Type: Spontaneous
  Country: IN (occurrence: None)
  Receive Date: 20130327
  Receipt Date: 20130327
  Transmission Date: 20140127
  Serious: Yes (Hospitalization)
  Sender: FDA-Public Use
  Company Number: 146803

PATIENT
  Age: 8 Month
  Sex: Female

DRUGS (1)
  1. RIFAMPIN [Suspect]
     Indication: PULMONARY TUBERCULOSIS

REACTIONS (4)
  - Acute respiratory distress syndrome [None]
  - Paradoxical drug reaction [None]
  - Paratracheal lymphadenopathy [None]
  - Hilar lymphadenopathy [None]
